FAERS Safety Report 24445852 (Version 1)
Quarter: 2024Q4

REPORT INFORMATION
  Report Type: Spontaneous
  Country: FR (occurrence: FR)
  Receive Date: 20241016
  Receipt Date: 20241016
  Transmission Date: 20250115
  Serious: Yes (Death)
  Sender: WAYLIS THERAPEUTICS LLC
  Company Number: None

PATIENT
  Age: 52 Year
  Sex: Female
  Weight: 50.3 kg

DRUGS (14)
  1. DIAZEPAM [Interacting]
     Active Substance: DIAZEPAM
     Indication: Product used for unknown indication
     Route: 050
     Dates: start: 201902
  2. BIMATOPROST [Interacting]
     Active Substance: BIMATOPROST
     Indication: Glaucoma
     Route: 050
     Dates: start: 2023
  3. EBASTINE [Interacting]
     Active Substance: EBASTINE
     Indication: Product used for unknown indication
     Route: 050
     Dates: start: 2018
  4. AMISULPRIDE [Interacting]
     Active Substance: AMISULPRIDE
     Indication: Bipolar disorder
     Route: 050
     Dates: start: 2018
  5. SERTRALINE HYDROCHLORIDE [Interacting]
     Active Substance: SERTRALINE HYDROCHLORIDE
     Indication: Bipolar disorder
     Route: 050
     Dates: start: 2018
  6. LANSOPRAZOLE [Interacting]
     Active Substance: LANSOPRAZOLE
     Indication: Gastroduodenal ulcer
     Route: 050
     Dates: start: 2023
  7. ONDANSETRON [Interacting]
     Active Substance: ONDANSETRON
     Indication: Vomiting
     Route: 050
     Dates: start: 2024
  8. TRAMADOL HYDROCHLORIDE [Interacting]
     Active Substance: TRAMADOL HYDROCHLORIDE
     Indication: Product used for unknown indication
     Route: 050
     Dates: start: 2023
  9. POSACONAZOLE [Interacting]
     Active Substance: POSACONAZOLE
     Indication: Oral candidiasis
     Route: 050
     Dates: start: 20240718
  10. LEVOTHYROXINE [Concomitant]
     Active Substance: LEVOTHYROXINE
     Indication: Product used for unknown indication
     Route: 050
     Dates: start: 20240611
  11. PAROEX [Concomitant]
     Active Substance: CHLORHEXIDINE GLUCONATE
     Indication: Product used for unknown indication
     Route: 050
     Dates: start: 2024
  12. ZOPICLONE [Concomitant]
     Active Substance: ZOPICLONE
     Indication: Product used for unknown indication
     Route: 050
     Dates: start: 2024
  13. LACTULOSE [Concomitant]
     Active Substance: LACTULOSE
     Indication: Product used for unknown indication
     Route: 050
     Dates: start: 2024
  14. LAMOTRIGINE [Concomitant]
     Active Substance: LAMOTRIGINE
     Indication: Bipolar disorder
     Route: 050
     Dates: start: 2018

REACTIONS (1)
  - Cardiac arrest [Fatal]

NARRATIVE: CASE EVENT DATE: 20240725
